FAERS Safety Report 21016222 (Version 3)
Quarter: 2022Q3

REPORT INFORMATION
  Report Type: Spontaneous
  Country: JP (occurrence: JP)
  Receive Date: 20220628
  Receipt Date: 20220805
  Transmission Date: 20221027
  Serious: Yes (Hospitalization, Other)
  Sender: FDA-Public Use
  Company Number: JP-ORGANON-O2206JPN002342

PATIENT
  Age: 59 Year
  Sex: Male

DRUGS (3)
  1. EZETIMIBE [Suspect]
     Active Substance: EZETIMIBE
     Dosage: ONE TIME DOSE: 10 MG/ DAY
     Route: 048
  2. OLMESARTAN MEDOXOMIL [Concomitant]
     Active Substance: OLMESARTAN MEDOXOMIL
     Dosage: ONE TIME DOSE: 20 MG/ DAY
     Route: 065
  3. AZELNIDIPINE [Concomitant]
     Active Substance: AZELNIDIPINE
     Dosage: ONE TIME DOSE: 8 MG/ DAY
     Route: 065

REACTIONS (3)
  - Viral myocarditis [Recovered/Resolved]
  - Cardiogenic shock [Recovered/Resolved]
  - Upper respiratory tract inflammation [Recovered/Resolved]
